FAERS Safety Report 18220787 (Version 1)
Quarter: 2020Q3

REPORT INFORMATION
  Report Type: Spontaneous
  Country: US (occurrence: US)
  Receive Date: 20200902
  Receipt Date: 20200902
  Transmission Date: 20201103
  Serious: No
  Sender: FDA-Public Use
  Company Number: US-ASTRAZENECA-2020SF08260

PATIENT

DRUGS (2)
  1. ROSUVASTATIN. [Suspect]
     Active Substance: ROSUVASTATIN
     Route: 048
  2. VYNDAMAX [Suspect]
     Active Substance: TAFAMIDIS
     Route: 065
     Dates: start: 202003

REACTIONS (5)
  - Orthostatic hypotension [Unknown]
  - Restrictive cardiomyopathy [Unknown]
  - Tendonitis [Recovered/Resolved]
  - Diarrhoea [Unknown]
  - Hypertension [Unknown]
